FAERS Safety Report 5833088-1 (Version None)
Quarter: 2008Q3

REPORT INFORMATION
  Report Type: 
  Country: None (occurrence: None)
  Receive Date: 20080805
  Receipt Date: 20080723
  Transmission Date: 20090109
  Serious: Yes (Other)
  Sender: FDA-Public Use
  Company Number: AT-ASTRAZENECA-2008PK01657

PATIENT
  Age: 54 Year
  Sex: Female

DRUGS (4)
  1. SEROQUEL [Suspect]
     Indication: AFFECTIVE DISORDER
     Route: 048
     Dates: start: 20080606, end: 20080607
  2. GERODORM [Concomitant]
     Route: 048
  3. BURONIL [Concomitant]
     Route: 048
  4. DEPAKENE [Concomitant]
     Route: 048

REACTIONS (1)
  - ENURESIS [None]
